FAERS Safety Report 6766216-4 (Version None)
Quarter: 2010Q2

REPORT INFORMATION
  Report Type: 
  Country: None (occurrence: None)
  Receive Date: 20100611
  Receipt Date: 20100607
  Transmission Date: 20101027
  Serious: Yes (Hospitalization, Other)
  Sender: FDA-Public Use
  Company Number: DE-TEVA-231912ISR

PATIENT
  Sex: Female

DRUGS (1)
  1. COPAXONE [Suspect]
     Indication: MULTIPLE SCLEROSIS
     Route: 058
     Dates: start: 20100410, end: 20100419

REACTIONS (8)
  - BLOOD PRESSURE ABNORMAL [None]
  - BLOOD TEST ABNORMAL [None]
  - CHILLS [None]
  - DRUG HYPERSENSITIVITY [None]
  - GENERAL PHYSICAL HEALTH DETERIORATION [None]
  - PAIN OF SKIN [None]
  - PYREXIA [None]
  - VASCULITIS [None]
